FAERS Safety Report 14728586 (Version 2)
Quarter: 2018Q2

REPORT INFORMATION
  Report Type: Spontaneous
  Country: DE (occurrence: DE)
  Receive Date: 20180406
  Receipt Date: 20180410
  Transmission Date: 20180711
  Serious: Yes (Other)
  Sender: FDA-Public Use
  Company Number: DE-ABBVIE-18K-062-2312142-00

PATIENT
  Age: 48 Year
  Sex: Male
  Weight: 66 kg

DRUGS (1)
  1. HUMIRA [Suspect]
     Active Substance: ADALIMUMAB
     Indication: CROHN^S DISEASE
     Dosage: DAILY DOSE: 40 MG MILLGRAM(S) EVERY 3 WEEKS
     Route: 058
     Dates: start: 20130909

REACTIONS (4)
  - CSF test abnormal [Unknown]
  - Language disorder [Unknown]
  - Hypoaesthesia [Unknown]
  - Encephalitis [Unknown]

NARRATIVE: CASE EVENT DATE: 20180313
